FAERS Safety Report 23564165 (Version 1)
Quarter: 2024Q1

REPORT INFORMATION
  Report Type: Spontaneous
  Country: US (occurrence: US)
  Receive Date: 20240226
  Receipt Date: 20240226
  Transmission Date: 20240409
  Serious: Yes (Hospitalization, Other)
  Sender: FDA-Public Use
  Company Number: US-AUROBINDO-AUR-APL-2024-007478

PATIENT
  Age: 33 Year
  Sex: Female

DRUGS (1)
  1. METHADONE [Suspect]
     Active Substance: METHADONE HYDROCHLORIDE
     Indication: Drug abuse
     Dosage: 170 MILLIGRAM, DAILY
     Route: 065

REACTIONS (10)
  - Suicide attempt [Unknown]
  - Overdose [Unknown]
  - Hypoglycaemia [Recovered/Resolved]
  - Adrenal insufficiency [Recovering/Resolving]
  - Mental status changes [Recovering/Resolving]
  - Miosis [Recovering/Resolving]
  - Lethargy [Recovering/Resolving]
  - Dizziness [Recovering/Resolving]
  - Nausea [Recovering/Resolving]
  - Headache [Recovering/Resolving]
